FAERS Safety Report 5802267-1 (Version None)
Quarter: 2008Q3

REPORT INFORMATION
  Report Type: 
  Country: None (occurrence: None)
  Receive Date: 20080707
  Receipt Date: 20080625
  Transmission Date: 20090109
  Serious: Yes (Hospitalization)
  Sender: FDA-Public Use
  Company Number: FR-PFIZER INC-2008054384

PATIENT
  Sex: Male
  Weight: 66 kg

DRUGS (4)
  1. SU-011,248 [Suspect]
     Indication: THYROID CANCER
  2. LEVOTHYROXINE SODIUM [Concomitant]
  3. FORMOTEROL W/BUDESONIDE [Concomitant]
  4. LENOGRASTIM [Concomitant]

REACTIONS (1)
  - PERICARDIAL EFFUSION [None]
